FAERS Safety Report 20852924 (Version 1)
Quarter: 2022Q2

REPORT INFORMATION
  Report Type: Spontaneous
  Country: US (occurrence: US)
  Receive Date: 20220520
  Receipt Date: 20220520
  Transmission Date: 20220720
  Serious: Yes (Hospitalization)
  Sender: FDA-Public Use
  Company Number: US-TARO PHARMACEUTICALS USA INC.-2021TAR00822

PATIENT

DRUGS (11)
  1. AMIODARONE HYDROCHLORIDE [Suspect]
     Active Substance: AMIODARONE HYDROCHLORIDE
     Indication: Atrial fibrillation
     Dosage: 200 MILLIGRAM, DAILY, TAB/CAP MARKING: TARO/56 ORANGE AND ROUND
     Route: 048
     Dates: start: 20210603
  2. AMIODARONE HYDROCHLORIDE [Suspect]
     Active Substance: AMIODARONE HYDROCHLORIDE
     Dosage: 200 MILLIGRAM, BID, 200 MG MORNING AND 200 MG AT NIGHT
     Route: 048
     Dates: start: 20210605
  3. AMIODARONE HYDROCHLORIDE [Suspect]
     Active Substance: AMIODARONE HYDROCHLORIDE
     Dosage: 400 MILLIGRAM, BID, 400 MG IN THE MORNING AND 400 AT NIGHT
     Route: 048
     Dates: start: 20210607
  4. AMIODARONE HYDROCHLORIDE [Suspect]
     Active Substance: AMIODARONE HYDROCHLORIDE
     Dosage: 300 MILLIGRAM, DAILY
     Route: 048
     Dates: start: 20210621
  5. AMIODARONE HYDROCHLORIDE [Suspect]
     Active Substance: AMIODARONE HYDROCHLORIDE
     Dosage: 200 MILLIGRAM
     Route: 048
     Dates: start: 20210629
  6. ASPIRIN [Concomitant]
     Active Substance: ASPIRIN
     Indication: Product used for unknown indication
     Dosage: HAS BEEN ON THIS MEDICATION FOR A WHILE
     Route: 065
  7. REPATHA [Concomitant]
     Active Substance: EVOLOCUMAB
     Indication: Product used for unknown indication
     Dosage: HAS BEEN ON THIS MEDICATION FOR A WHILE
     Route: 065
  8. CARVEDILOL [Concomitant]
     Active Substance: CARVEDILOL
     Indication: Product used for unknown indication
     Dosage: HAS BEEN ON THESE MEDICATIONS FOR A WHILE
     Route: 065
  9. Entrestro [Concomitant]
     Indication: Pleural effusion
     Dosage: UNK, OD, HALF OF 24/26 MILLIGRAM
     Route: 048
     Dates: start: 20210629
  10. Entrestro [Concomitant]
     Dosage: UNK, QD, FULL TABLET
     Dates: start: 20210706
  11. UNSPECIFIED INGREDIENT [Concomitant]
     Active Substance: UNSPECIFIED INGREDIENT
     Indication: Pleural effusion
     Dosage: UNK
     Route: 065

REACTIONS (4)
  - Pleural effusion [Recovering/Resolving]
  - Tinnitus [Recovering/Resolving]
  - Dizziness [Recovering/Resolving]
  - Headache [Recovering/Resolving]

NARRATIVE: CASE EVENT DATE: 20210607
